FAERS Safety Report 8420813-9 (Version None)
Quarter: 2012Q2

REPORT INFORMATION
  Report Type: 
  Country: None (occurrence: None)
  Receive Date: 20120608
  Receipt Date: 20120605
  Transmission Date: 20120825
  Serious: Yes (Other)
  Sender: FDA-Public Use
  Company Number: US-PFIZER INC-2012135330

PATIENT
  Sex: Female
  Weight: 58.957 kg

DRUGS (9)
  1. TRICOR [Concomitant]
     Indication: BLOOD CHOLESTEROL INCREASED
     Dosage: UNK, DAILY
     Route: 048
  2. FOSINOPRIL [Concomitant]
     Indication: HYPERTENSION
     Dosage: UNK, DAILY
  3. ATENOLOL [Concomitant]
     Indication: HYPERTENSION
     Dosage: UNK
  4. CRESTOR [Concomitant]
     Indication: BLOOD CHOLESTEROL INCREASED
     Dosage: 10 MG, 1X/DAY
     Route: 048
  5. IRON [Concomitant]
     Indication: IRON DEFICIENCY
     Dosage: UNK
  6. VITAMIN B COMPLEX CAP [Concomitant]
     Indication: HYPOVITAMINOSIS
     Dosage: EVERY OTHER MONTH
  7. CORTISONE [Concomitant]
     Dosage: UNK
  8. LYRICA [Suspect]
     Indication: FIBROMYALGIA
     Dosage: UNK
     Route: 048
     Dates: start: 20100101
  9. XANAX [Concomitant]
     Indication: ANXIETY
     Dosage: 5 MG, AS NEEDED
     Route: 048

REACTIONS (2)
  - MUSCLE SPASMS [None]
  - PAIN [None]
